FAERS Safety Report 21645566 (Version 1)
Quarter: 2022Q4

REPORT INFORMATION
  Report Type: Report from Study
  Country: US (occurrence: US)
  Receive Date: 20221126
  Receipt Date: 20221126
  Transmission Date: 20230113
  Serious: No
  Sender: FDA-Public Use
  Company Number: US-ABBVIE-4174997

PATIENT
  Sex: Female
  Weight: 58 kg

DRUGS (1)
  1. SYNTHROID [Suspect]
     Active Substance: LEVOTHYROXINE SODIUM
     Indication: Product used for unknown indication
     Dosage: TOOK SYNTHROID WHEN PATIENT WAS AROUND 38-39 YEARS OLD
     Route: 048

REACTIONS (1)
  - Drug ineffective [Unknown]
